FAERS Safety Report 10237305 (Version 1)
Quarter: 2014Q2

REPORT INFORMATION
  Report Type: Spontaneous
  Country: US (occurrence: US)
  Receive Date: 20140613
  Receipt Date: 20140613
  Transmission Date: 20141212
  Serious: Yes (Hospitalization)
  Sender: FDA-Public Use
  Company Number: US-GILEAD-2014-0104932

PATIENT
  Age: 62 Year
  Sex: Male

DRUGS (1)
  1. VIREAD [Suspect]
     Indication: HEPATITIS B
     Dosage: UNK
     Route: 065
     Dates: start: 200402

REACTIONS (9)
  - Mental disorder [Unknown]
  - Psychotic disorder [Unknown]
  - Pyrexia [Unknown]
  - Insomnia [Unknown]
  - Pruritus [Unknown]
  - Abdominal pain [Unknown]
  - Nausea [Unknown]
  - Vomiting [Unknown]
  - Dizziness [Unknown]
